FAERS Safety Report 11111430 (Version 1)
Quarter: 2015Q2

REPORT INFORMATION
  Report Type: Spontaneous
  Country: JP (occurrence: JP)
  Receive Date: 20150513
  Receipt Date: 20150513
  Transmission Date: 20150821
  Serious: Yes (Hospitalization)
  Sender: FDA-Public Use
  Company Number: PHJP2015JP003654

PATIENT
  Age: 17 Year
  Sex: Female

DRUGS (4)
  1. TEGRETOL [Suspect]
     Active Substance: CARBAMAZEPINE
     Dosage: 300 MG, BID (200 MG  1.5 DF IN THE MORNING AND EVENING)
     Route: 048
     Dates: start: 20150130
  2. LAMOTRIGINE. [Concomitant]
     Active Substance: LAMOTRIGINE
     Indication: PRODUCT USED FOR UNKNOWN INDICATION
     Dosage: 250 MG, UNK
     Route: 048
     Dates: start: 20140910
  3. TEGRETOL [Suspect]
     Active Substance: CARBAMAZEPINE
     Dosage: 700 MG, QD (200 MG  1.5 DF IN THE MORNING AND 200 MG  2 DF IN THE EVENING)
     Route: 048
     Dates: start: 20150205
  4. TEGRETOL [Suspect]
     Active Substance: CARBAMAZEPINE
     Indication: PARTIAL SEIZURES
     Dosage: 700 MG, QD (200 MG 1.5 DF MORNING AND 200 MG 2 DF IN THE EVENING)
     Route: 048
     Dates: start: 20100501, end: 20150129

REACTIONS (2)
  - Anticonvulsant drug level increased [Recovered/Resolved]
  - Toxicity to various agents [Recovered/Resolved]

NARRATIVE: CASE EVENT DATE: 20150129
